FAERS Safety Report 7634198-9 (Version None)
Quarter: 2011Q3

REPORT INFORMATION
  Report Type: 
  Country: None (occurrence: None)
  Receive Date: 20110725
  Receipt Date: 20080911
  Transmission Date: 20111222
  Serious: Yes (Hospitalization, Other)
  Sender: FDA-Public Use
  Company Number: DE-GENENTECH-321748

PATIENT
  Age: 83 Year
  Sex: Male

DRUGS (1)
  1. LUCENTIS [Suspect]
     Indication: AGE-RELATED MACULAR DEGENERATION
     Dosage: UNK
     Route: 031
     Dates: start: 20080911

REACTIONS (7)
  - RENAL DISORDER [None]
  - MUSCULOSKELETAL DISCOMFORT [None]
  - HYPOACUSIS [None]
  - SPINAL DISORDER [None]
  - ANGIOGRAM RETINA ABNORMAL [None]
  - VISUAL ACUITY REDUCED [None]
  - PULMONARY EMBOLISM [None]
